FAERS Safety Report 5342188-4 (Version None)
Quarter: 2007Q2

REPORT INFORMATION
  Report Type: 
  Country: None (occurrence: None)
  Receive Date: 20070601
  Receipt Date: 20070522
  Transmission Date: 20071010
  Serious: Yes (Hospitalization)
  Sender: FDA-Public Use
  Company Number: B0472941A

PATIENT
  Age: 34 Year
  Sex: Female

DRUGS (2)
  1. TRANYLCYPROMINE SULFATE [Suspect]
     Indication: DEPRESSION
     Dosage: 80MG PER DAY
     Route: 065
  2. MODAFINIL [Suspect]
     Dosage: 200MG PER DAY
     Route: 065

REACTIONS (11)
  - ABNORMAL BEHAVIOUR [None]
  - CHOREA [None]
  - CONFUSIONAL STATE [None]
  - DYSKINESIA [None]
  - HYPERTHERMIA [None]
  - OPISTHOTONUS [None]
  - RESTLESSNESS [None]
  - SEROTONIN SYNDROME [None]
  - SPEECH DISORDER [None]
  - TARDIVE DYSKINESIA [None]
  - TIC [None]
